FAERS Safety Report 6055211-9 (Version None)
Quarter: 2009Q1

REPORT INFORMATION
  Report Type: 
  Country: None (occurrence: None)
  Receive Date: 20090123
  Receipt Date: 20090111
  Transmission Date: 20090719
  Serious: Yes (Death, Other)
  Sender: FDA-Public Use
  Company Number: 144152

PATIENT
  Age: 58 Year

DRUGS (10)
  1. VINCRISTINE SULFATE [Suspect]
     Indication: HODGKIN'S DISEASE
  2. DOXORUBICIN HCL [Suspect]
     Indication: HODGKIN'S DISEASE
  3. BLEOMYCIN SULFATE [Suspect]
     Indication: HODGKIN'S DISEASE
  4. DACARBAZINE [Suspect]
     Indication: HODGKIN'S DISEASE
  5. THERAPEUTIC RADIOPHARMACEUTICALS [Suspect]
     Indication: HODGKIN'S DISEASE
     Dosage: MANTEL/37.8 GY; NECK/SUPRACLAVICULAR/45.0 GY; AXILLA/43.0 GY; PARA-AORTIC-SPLEEN/360.0 GY
  6. IFOSFAMIDE [Suspect]
     Indication: HODGKIN'S DISEASE
  7. CARBOPLATIN [Suspect]
     Indication: HODGKIN'S DISEASE
  8. ETOPOSIDE [Suspect]
     Indication: HODGKIN'S DISEASE
  9. CARMUSTINE [Suspect]
     Indication: HODGKIN'S DISEASE
  10. CYCLOPHOSPHAMIDE [Suspect]
     Indication: HODGKIN'S DISEASE

REACTIONS (2)
  - NON-HODGKIN'S LYMPHOMA [None]
  - STEM CELL TRANSPLANT [None]
